FAERS Safety Report 5070085-0 (Version None)
Quarter: 2006Q3

REPORT INFORMATION
  Report Type: 
  Country: None (occurrence: None)
  Receive Date: 20060803
  Receipt Date: 20060728
  Transmission Date: 20061208
  Serious: Yes (Other)
  Sender: FDA-Public Use
  Company Number: TR-BRISTOL-MYERS SQUIBB COMPANY-13461983

PATIENT
  Age: 2 Year
  Sex: Male

DRUGS (2)
  1. CCNU [Suspect]
     Indication: MEDULLOBLASTOMA
  2. RADIATION THERAPY [Suspect]
     Indication: MEDULLOBLASTOMA
     Dosage: 3000CGY TO CRANIOSPINAL AREA + 500CGY TO POSTERIOR FOSSA

REACTIONS (2)
  - BASAL CELL CARCINOMA [None]
  - TREATMENT RELATED SECONDARY MALIGNANCY [None]
